FAERS Safety Report 11289028 (Version 2)
Quarter: 2015Q3

REPORT INFORMATION
  Report Type: Report from Study
  Country: PR (occurrence: PR)
  Receive Date: 20150721
  Receipt Date: 20150807
  Transmission Date: 20151125
  Serious: Yes (Death, Other)
  Sender: FDA-Public Use
  Company Number: PR-GILEAD-2015-0163547

PATIENT

DRUGS (3)
  1. EMTRICITABINE/TENOFOVIR DISOPROXIL FUMARATE [Suspect]
     Active Substance: EMTRICITABINE\TENOFOVIR DISOPROXIL
     Indication: HIV INFECTION
     Dosage: 1 DF, QD
     Route: 064
     Dates: start: 20141110, end: 20150121
  2. RITONAVIR. [Suspect]
     Active Substance: RITONAVIR
     Indication: HIV INFECTION
     Dosage: 100 MG, QD
     Route: 064
     Dates: start: 20141110, end: 20150121
  3. DARUNAVIR [Suspect]
     Active Substance: DARUNAVIR
     Indication: HIV INFECTION
     Dosage: 800 MG, QD
     Route: 064
     Dates: start: 20141110, end: 20150121

REACTIONS (1)
  - Foetal heart rate abnormal [Fatal]

NARRATIVE: CASE EVENT DATE: 20150121
